FAERS Safety Report 24594255 (Version 1)
Quarter: 2024Q4

REPORT INFORMATION
  Report Type: Spontaneous
  Country: US (occurrence: US)
  Receive Date: 20241108
  Receipt Date: 20241108
  Transmission Date: 20250115
  Serious: Yes (Hospitalization, Other)
  Sender: SANOFI AVENTIS
  Company Number: US-SA-2024SA318151

PATIENT
  Age: 65 Year
  Sex: Male

DRUGS (1)
  1. DUPIXENT [Suspect]
     Active Substance: DUPILUMAB
     Indication: Dermatitis atopic
     Dosage: UNK
     Dates: start: 2018, end: 202410

REACTIONS (2)
  - Chronic inflammatory demyelinating polyradiculoneuropathy [Recovering/Resolving]
  - Areflexia [Unknown]

NARRATIVE: CASE EVENT DATE: 20240101
